FAERS Safety Report 5854669-5 (Version None)
Quarter: 2008Q3

REPORT INFORMATION
  Report Type: 
  Country: None (occurrence: None)
  Receive Date: 20080822
  Receipt Date: 20080813
  Transmission Date: 20090109
  Serious: No
  Sender: FDA-Public Use
  Company Number: GB-PFIZER INC-2008067398

PATIENT

DRUGS (4)
  1. NELFINAVIR MESILATE [Suspect]
     Indication: PANCREATIC CARCINOMA
     Route: 048
  2. NELFINAVIR MESILATE [Suspect]
  3. CISPLATIN [Suspect]
     Indication: PANCREATIC CARCINOMA
     Dosage: DAILY DOSE:30MG/M2
  4. GEMCITABINE [Suspect]
     Indication: PANCREATIC CARCINOMA
     Dosage: DAILY DOSE:300MG/M2

REACTIONS (1)
  - NO ADVERSE EVENT [None]
